FAERS Safety Report 5924619-1 (Version None)
Quarter: 2008Q4

REPORT INFORMATION
  Report Type: 
  Country: None (occurrence: None)
  Receive Date: 20081016
  Receipt Date: 20081002
  Transmission Date: 20090506
  Serious: Yes (Hospitalization)
  Sender: FDA-Public Use
  Company Number: MPS1-1000116

PATIENT
  Age: 41 Year
  Sex: Female
  Weight: 40 kg

DRUGS (1)
  1. ALDURAZYME [Suspect]
     Indication: MUCOPOLYSACCHARIDOSIS I
     Dosage: 23.2 MG, 1X/W, INTRAVENOUS
     Route: 042
     Dates: start: 20050120

REACTIONS (6)
  - HEADACHE [None]
  - HYPOAESTHESIA [None]
  - INFUSION RELATED REACTION [None]
  - POSTOPERATIVE WOUND INFECTION [None]
  - RASH [None]
  - WOUND INFECTION [None]
